FAERS Safety Report 17250157 (Version 3)
Quarter: 2020Q1

REPORT INFORMATION
  Report Type: Report from Study
  Country: PL (occurrence: PL)
  Receive Date: 20200109
  Receipt Date: 20200128
  Transmission Date: 20200409
  Serious: Yes (Death, Hospitalization)
  Sender: FDA-Public Use
  Company Number: PL-ROCHE-2514574

PATIENT
  Age: 50 Year
  Sex: Male
  Weight: 72.5 kg

DRUGS (55)
  1. PARACETAMOL [Concomitant]
     Active Substance: ACETAMINOPHEN
     Route: 065
     Dates: start: 20190424, end: 20190424
  2. KETONAL [KETOPROFEN] [Concomitant]
     Active Substance: KETOPROFEN
     Route: 065
     Dates: start: 20190313, end: 20190313
  3. KETONAL [KETOPROFEN] [Concomitant]
     Active Substance: KETOPROFEN
     Route: 065
     Dates: start: 20190403, end: 20190403
  4. KETONAL [KETOPROFEN] [Concomitant]
     Active Substance: KETOPROFEN
     Route: 065
     Dates: start: 20190626, end: 20190626
  5. PYRALGINUM [Concomitant]
     Active Substance: METAMIZOLE SODIUM
     Route: 065
     Dates: start: 20190403, end: 20190403
  6. EUPHYLIN [Concomitant]
     Active Substance: AMINOPHYLLINE
     Indication: CHRONIC OBSTRUCTIVE PULMONARY DISEASE
     Route: 065
     Dates: start: 20190904
  7. ATROVENT [Concomitant]
     Active Substance: IPRATROPIUM BROMIDE
     Indication: CHRONIC OBSTRUCTIVE PULMONARY DISEASE
     Route: 065
     Dates: start: 20190904
  8. RO6874281 (FAP IL2V MAB) [Suspect]
     Active Substance: SIMLUKAFUSP ALFA
     Indication: OESOPHAGEAL SQUAMOUS CELL CARCINOMA
     Dosage: DATE OF MOST RECENT DOSE OF RO6874281 PRIOR TO AE ONSET: 27/NOV/2019 (TIME:12.50)
     Route: 042
     Dates: start: 20190109
  9. HUMALOG [Concomitant]
     Active Substance: INSULIN LISPRO
     Indication: DIABETES MELLITUS
     Route: 065
     Dates: start: 1995
  10. PARACETAMOL [Concomitant]
     Active Substance: ACETAMINOPHEN
     Route: 065
     Dates: start: 20191106, end: 20191106
  11. KETONAL [KETOPROFEN] [Concomitant]
     Active Substance: KETOPROFEN
     Route: 065
     Dates: start: 20190717, end: 20190717
  12. KETONAL [KETOPROFEN] [Concomitant]
     Active Substance: KETOPROFEN
     Route: 065
     Dates: start: 20191106, end: 20191106
  13. PYRALGINUM [Concomitant]
     Active Substance: METAMIZOLE SODIUM
     Route: 065
     Dates: start: 20190605, end: 20190605
  14. PYRALGINUM [Concomitant]
     Active Substance: METAMIZOLE SODIUM
     Route: 065
     Dates: start: 20191127, end: 20191127
  15. PARACETAMOL [Concomitant]
     Active Substance: ACETAMINOPHEN
     Route: 065
     Dates: start: 20190313, end: 20190313
  16. PARACETAMOL [Concomitant]
     Active Substance: ACETAMINOPHEN
     Route: 065
     Dates: start: 20190605, end: 20190605
  17. PARACETAMOL [Concomitant]
     Active Substance: ACETAMINOPHEN
     Route: 065
     Dates: start: 20190626, end: 20190626
  18. PARACETAMOL [Concomitant]
     Active Substance: ACETAMINOPHEN
     Route: 065
     Dates: start: 20190918, end: 20190918
  19. KETONAL [KETOPROFEN] [Concomitant]
     Active Substance: KETOPROFEN
     Route: 065
     Dates: start: 20190220, end: 20190220
  20. KETONAL [KETOPROFEN] [Concomitant]
     Active Substance: KETOPROFEN
     Route: 065
     Dates: start: 20190828, end: 20190828
  21. KETONAL [KETOPROFEN] [Concomitant]
     Active Substance: KETOPROFEN
     Route: 065
     Dates: start: 20191009, end: 20191009
  22. PYRALGINUM [Concomitant]
     Active Substance: METAMIZOLE SODIUM
     Route: 065
     Dates: start: 20190515, end: 20190515
  23. PYRALGINUM [Concomitant]
     Active Substance: METAMIZOLE SODIUM
     Route: 065
     Dates: start: 20190828, end: 20190828
  24. KETONAL [KETOPROFEN] [Concomitant]
     Active Substance: KETOPROFEN
     Route: 065
     Dates: start: 20190109, end: 20190109
  25. PYRALGINUM [Concomitant]
     Active Substance: METAMIZOLE SODIUM
     Route: 065
     Dates: start: 20190130, end: 20190130
  26. PYRALGINUM [Concomitant]
     Active Substance: METAMIZOLE SODIUM
     Route: 065
     Dates: start: 20190313, end: 20190313
  27. PYRALGINUM [Concomitant]
     Active Substance: METAMIZOLE SODIUM
     Route: 065
     Dates: start: 20191106, end: 20191106
  28. PARACETAMOL [Concomitant]
     Active Substance: ACETAMINOPHEN
     Route: 065
     Dates: start: 20190109, end: 20190109
  29. PARACETAMOL [Concomitant]
     Active Substance: ACETAMINOPHEN
     Route: 065
     Dates: start: 20190130, end: 20190130
  30. PARACETAMOL [Concomitant]
     Active Substance: ACETAMINOPHEN
     Route: 065
     Dates: start: 20190717, end: 20190717
  31. PYRALGINUM [Concomitant]
     Active Substance: METAMIZOLE SODIUM
     Route: 065
     Dates: start: 20190109, end: 20190109
  32. PYRALGINUM [Concomitant]
     Active Substance: METAMIZOLE SODIUM
     Route: 065
     Dates: start: 20190807, end: 20190807
  33. PYRALGINUM [Concomitant]
     Active Substance: METAMIZOLE SODIUM
     Route: 065
     Dates: start: 20190918, end: 20190918
  34. PARACETAMOL [Concomitant]
     Active Substance: ACETAMINOPHEN
     Route: 065
     Dates: start: 20190828, end: 20190828
  35. KETONAL [KETOPROFEN] [Concomitant]
     Active Substance: KETOPROFEN
     Route: 065
     Dates: start: 20190130, end: 20190130
  36. KETONAL [KETOPROFEN] [Concomitant]
     Active Substance: KETOPROFEN
     Route: 065
     Dates: start: 20190807, end: 20190807
  37. PYRALGINUM [Concomitant]
     Active Substance: METAMIZOLE SODIUM
     Route: 065
     Dates: start: 20190626, end: 20190626
  38. CONTROLOC [Concomitant]
     Active Substance: PANTOPRAZOLE SODIUM
     Indication: PANCREATITIS CHRONIC
     Route: 065
     Dates: start: 1995
  39. PARACETAMOL [Concomitant]
     Active Substance: ACETAMINOPHEN
     Route: 065
     Dates: start: 20190220, end: 20190220
  40. PARACETAMOL [Concomitant]
     Active Substance: ACETAMINOPHEN
     Route: 065
     Dates: start: 20190403, end: 20190403
  41. PARACETAMOL [Concomitant]
     Active Substance: ACETAMINOPHEN
     Route: 065
     Dates: start: 20190515, end: 20190515
  42. PARACETAMOL [Concomitant]
     Active Substance: ACETAMINOPHEN
     Route: 065
     Dates: start: 20191127, end: 20191127
  43. KETONAL [KETOPROFEN] [Concomitant]
     Active Substance: KETOPROFEN
     Route: 065
     Dates: start: 20190515, end: 20190515
  44. PYRALGINUM [Concomitant]
     Active Substance: METAMIZOLE SODIUM
     Route: 065
     Dates: start: 20190424, end: 20190424
  45. PYRALGINUM [Concomitant]
     Active Substance: METAMIZOLE SODIUM
     Route: 065
     Dates: start: 20190717, end: 20190717
  46. PYRALGINUM [Concomitant]
     Active Substance: METAMIZOLE SODIUM
     Route: 065
     Dates: start: 20191009, end: 20191009
  47. ATEZOLIZUMAB. [Suspect]
     Active Substance: ATEZOLIZUMAB
     Indication: OESOPHAGEAL SQUAMOUS CELL CARCINOMA
     Dosage: DATE OF MOST RECENT DOSE OF ATEZOLIZUMAB PRIOR TO AE ONSET: 27/NOV/2019 (TIME;11.20)
     Route: 042
     Dates: start: 20190109
  48. KREON [Concomitant]
     Active Substance: PANCRELIPASE
     Indication: PANCREATITIS CHRONIC
     Route: 065
     Dates: start: 1995
  49. PARACETAMOL [Concomitant]
     Active Substance: ACETAMINOPHEN
     Route: 065
     Dates: start: 20190807, end: 20190807
  50. PARACETAMOL [Concomitant]
     Active Substance: ACETAMINOPHEN
     Route: 065
     Dates: start: 20191009, end: 20191009
  51. KETONAL [KETOPROFEN] [Concomitant]
     Active Substance: KETOPROFEN
     Route: 065
     Dates: start: 20190424, end: 20190424
  52. KETONAL [KETOPROFEN] [Concomitant]
     Active Substance: KETOPROFEN
     Route: 065
     Dates: start: 20190605, end: 20190605
  53. KETONAL [KETOPROFEN] [Concomitant]
     Active Substance: KETOPROFEN
     Route: 065
     Dates: start: 20190918, end: 20190918
  54. KETONAL [KETOPROFEN] [Concomitant]
     Active Substance: KETOPROFEN
     Route: 065
     Dates: start: 20191127, end: 20191127
  55. PYRALGINUM [Concomitant]
     Active Substance: METAMIZOLE SODIUM
     Route: 065
     Dates: start: 20190220, end: 20190220

REACTIONS (1)
  - General physical health deterioration [Fatal]

NARRATIVE: CASE EVENT DATE: 20200101
